FAERS Safety Report 25503546 (Version 1)
Quarter: 2025Q3

REPORT INFORMATION
  Report Type: Spontaneous
  Country: US (occurrence: US)
  Receive Date: 20250702
  Receipt Date: 20250702
  Transmission Date: 20251020
  Serious: Yes (Other)
  Sender: AUROBINDO
  Company Number: US-MLMSERVICE-20250605-PI534463-00275-1

PATIENT
  Age: 17 Year
  Sex: Female

DRUGS (7)
  1. QUETIAPINE [Suspect]
     Active Substance: QUETIAPINE
     Indication: Psychotic symptom
     Route: 048
     Dates: start: 202406, end: 202406
  2. RISPERIDONE [Suspect]
     Active Substance: RISPERIDONE
     Indication: Psychotic disorder
     Dosage: 0.25 MILLIGRAM, TWO TIMES A DAY
     Route: 048
     Dates: start: 202406, end: 202406
  3. OLANZAPINE [Suspect]
     Active Substance: OLANZAPINE
     Indication: Psychotic disorder
     Route: 065
     Dates: start: 202409, end: 202409
  4. LORAZEPAM [Suspect]
     Active Substance: LORAZEPAM
     Indication: Psychotic disorder
     Dosage: 1 MILLIGRAM, TWO TIMES A DAY
     Route: 065
  5. LORAZEPAM [Suspect]
     Active Substance: LORAZEPAM
     Dosage: 1.5 MILLIGRAM, FOUR TIMES/DAY ((TOTAL 6 MG DAILY MAXIMUM))
     Route: 065
  6. FLUOXETINE [Suspect]
     Active Substance: FLUOXETINE HYDROCHLORIDE
     Indication: Psychotic disorder
     Route: 065
  7. MELATONIN [Concomitant]
     Active Substance: MELATONIN
     Indication: Insomnia
     Route: 065

REACTIONS (6)
  - Sedation [Unknown]
  - Urinary incontinence [Unknown]
  - Catatonia [Unknown]
  - Condition aggravated [Unknown]
  - Sedation complication [Unknown]
  - Treatment noncompliance [Unknown]

NARRATIVE: CASE EVENT DATE: 20240601
